FAERS Safety Report 23560789 (Version 1)
Quarter: 2024Q1

REPORT INFORMATION
  Report Type: Report from Study
  Country: US (occurrence: US)
  Receive Date: 20240223
  Receipt Date: 20240223
  Transmission Date: 20240410
  Serious: Yes (Death)
  Sender: FDA-Public Use
  Company Number: US-ABBVIE-5650793

PATIENT
  Sex: Male

DRUGS (5)
  1. VENCLEXTA [Suspect]
     Active Substance: VENETOCLAX
     Indication: Product used for unknown indication
     Dosage: FORM STRENGTH WAS 100 MILLIGRAM?TOOK 200 MILLIGRAM (2X100MG TABLETS) WITH MEAL AND WATER SWALLOW ...
     Route: 048
  2. VENCLEXTA [Suspect]
     Active Substance: VENETOCLAX
     Indication: Product used for unknown indication
     Dosage: FORM STRENGTH WAS 100 MILLIGRAM ?TOOK WITH MEAL AND WATER SWALLOW WHOLE?WEEK 3
     Route: 048
  3. VENCLEXTA [Suspect]
     Active Substance: VENETOCLAX
     Indication: Product used for unknown indication
     Dosage: FORM STRENGTH WAS 10 MILLIGRAM?TOOK 20 MILLIGRAM (2X10MG TABLET) ON WEEK 1 WITH MEAL AND WATER SW...
     Route: 048
  4. VENCLEXTA [Suspect]
     Active Substance: VENETOCLAX
     Indication: Product used for unknown indication
     Dosage: FORM STRENGTH WAS 50 MILLIGRAM ?TOOK WITH MEAL AND WATER SWALLOW WHOLE?WEEK 2
     Route: 048
  5. GAZYVA [Suspect]
     Active Substance: OBINUTUZUMAB
     Indication: Chronic leukaemia
     Route: 042

REACTIONS (1)
  - Death [Fatal]
